FAERS Safety Report 9595515 (Version 1)
Quarter: 2013Q4

REPORT INFORMATION
  Report Type: Spontaneous
  Country: US (occurrence: US)
  Receive Date: 20131004
  Receipt Date: 20131004
  Transmission Date: 20140711
  Serious: No
  Sender: FDA-Public Use
  Company Number: US-PURDUE-USA-2012-0093132

PATIENT
  Age: 48 Year
  Sex: Female

DRUGS (3)
  1. BUTRANS [Suspect]
     Indication: BACK PAIN
     Dosage: 10 MCG, UNK
     Route: 062
     Dates: start: 2012
  2. BUTRANS [Suspect]
     Indication: NECK PAIN
  3. PERCOCET                           /00867901/ [Concomitant]
     Indication: BREAKTHROUGH PAIN
     Dosage: 1 TABLET, DAILY
     Route: 048
     Dates: start: 2008

REACTIONS (3)
  - Drug ineffective [Unknown]
  - Product adhesion issue [Unknown]
  - Pain [Not Recovered/Not Resolved]
